FAERS Safety Report 17553294 (Version 1)
Quarter: 2020Q3

REPORT INFORMATION
  Report Type: Spontaneous
  Country: US (occurrence: US)
  Receive Date: 20200310
  Receipt Date: 20200310
  Transmission Date: 20201104
  Serious: No
  Sender: FDA-Public Use
  Company Number: None

PATIENT

DRUGS (2)
  1. METHYLCOBALAMIN. [Suspect]
     Active Substance: METHYLCOBALAMIN
  2. B12/DOUBLE MIC/LIDOCAINE (CHOLINE\CYANOCOBALAMIN\INOSITOL\LIDOCAINE\METHIONINE) [Suspect]
     Active Substance: CHOLINE\CYANOCOBALAMIN\INOSITOL\LIDOCAINE\METHIONINE

REACTIONS (3)
  - Wrong product administered [None]
  - Injection site pain [None]
  - Product dispensing error [None]
